FAERS Safety Report 4688421-3 (Version None)
Quarter: 2005Q2

REPORT INFORMATION
  Report Type: 
  Country: None (occurrence: None)
  Receive Date: 20050613
  Receipt Date: 20050603
  Transmission Date: 20051028
  Serious: Yes (Other)
  Sender: FDA-Public Use
  Company Number: PHBS2005BE07972

PATIENT

DRUGS (1)
  1. AREDIA [Suspect]
     Route: 065

REACTIONS (2)
  - ASEPTIC NECROSIS BONE [None]
  - TOOTH EXTRACTION [None]
